FAERS Safety Report 8903720 (Version 1)
Quarter: 2012Q4

REPORT INFORMATION
  Report Type: 
  Country: US (occurrence: US)
  Receive Date: 20121113
  Receipt Date: 20121113
  Transmission Date: 20130627
  Serious: Yes (Other)
  Sender: FDA-Public Use
  Company Number: US-UCBSA-070711

PATIENT
  Age: 28 Year
  Sex: Female

DRUGS (4)
  1. CERTOLIZUMAB [Suspect]
     Indication: CROHN^S DISEASE
     Dosage: UNKNOWN DOSE
  2. MESALAMINE [Concomitant]
     Dosage: UNKNOWN DOSE
     Route: 048
  3. MESALAMINE [Concomitant]
     Dosage: UNKNOWN DOSE
     Route: 054
  4. DAPSONE [Concomitant]
     Dosage: UNKNOWN DOSE

REACTIONS (3)
  - Linear IgA disease [Recovered/Resolved]
  - Caesarean section [Recovered/Resolved]
  - Exposure during pregnancy [Recovered/Resolved]
